FAERS Safety Report 6819106-2 (Version None)
Quarter: 2010Q3

REPORT INFORMATION
  Report Type: 
  Country: None (occurrence: None)
  Receive Date: 20100707
  Receipt Date: 20100628
  Transmission Date: 20110219
  Serious: Yes (Other)
  Sender: FDA-Public Use
  Company Number: JP-JNJFOC-20100700601

PATIENT
  Sex: Male

DRUGS (3)
  1. RISPERDAL CONSTA [Suspect]
     Indication: PRODUCT USED FOR UNKNOWN INDICATION
     Route: 030
  2. HALOMONTH [Suspect]
     Indication: PRODUCT USED FOR UNKNOWN INDICATION
     Route: 030
  3. BOFUTSUSHOSAN [Concomitant]
     Route: 048

REACTIONS (8)
  - CONSTIPATION [None]
  - HYPOREFLEXIA [None]
  - INCREASED APPETITE [None]
  - LIBIDO DECREASED [None]
  - MALAISE [None]
  - MYALGIA [None]
  - NEURALGIA [None]
  - WEIGHT INCREASED [None]
